FAERS Safety Report 13690071 (Version 2)
Quarter: 2017Q2

REPORT INFORMATION
  Report Type: Spontaneous
  Country: DE (occurrence: DE)
  Receive Date: 20170626
  Receipt Date: 20170629
  Transmission Date: 20170830
  Serious: Yes (Death, Hospitalization)
  Sender: FDA-Public Use
  Company Number: DE-SA-2017SA113440

PATIENT
  Age: 57 Year
  Sex: Female
  Weight: 65 kg

DRUGS (13)
  1. PRALUENT [Suspect]
     Active Substance: ALIROCUMAB
     Indication: HYPERCHOLESTEROLAEMIA
     Route: 058
     Dates: start: 20160711
  2. ALIROCUMAB PREFILLED PEN [Concomitant]
     Active Substance: ALIROCUMAB
     Indication: HYPERCHOLESTEROLAEMIA
     Dates: start: 20160711
  3. QUENSYL [Concomitant]
     Active Substance: HYDROXYCHLOROQUINE
     Indication: CREST SYNDROME
     Dosage: 155 (UNIT UNKNOWN); 1-0-1
     Route: 048
     Dates: start: 20131230
  4. EZETROL [Concomitant]
     Active Substance: EZETIMIBE
     Indication: HYPERCHOLESTEROLAEMIA
     Dosage: 10 MG; 1-0-0
     Route: 048
     Dates: start: 20100702
  5. SIMVASTATIN. [Concomitant]
     Active Substance: SIMVASTATIN
     Indication: HYPERCHOLESTEROLAEMIA
     Dosage: 80 MG; 0-0-1
     Route: 048
     Dates: start: 20100702
  6. SEEBRI BREEZHALER [Concomitant]
     Active Substance: GLYCOPYRROLATE
     Indication: CHRONIC OBSTRUCTIVE PULMONARY DISEASE
     Dosage: 44 MICROGRAM; 1-0-0
     Route: 055
     Dates: start: 20170602
  7. OMEPRAZOLE. [Concomitant]
     Active Substance: OMEPRAZOLE
     Indication: PROPHYLAXIS
     Dosage: 20 MG; 1-0-0
     Route: 048
     Dates: start: 20100927
  8. METOPROLOL SUCCINATE. [Concomitant]
     Active Substance: METOPROLOL SUCCINATE
     Indication: HYPERTENSION
     Dosage: 47.5 MG; 1-0-1
     Route: 048
     Dates: start: 20100702
  9. MARCUMAR [Concomitant]
     Active Substance: PHENPROCOUMON
     Indication: BLOOD DISORDER
     Dosage: 3 MG?DOSE AND FREQUENCY DEPENDING ON THE INR
     Route: 048
     Dates: start: 20100702
  10. IDEOS [Concomitant]
     Active Substance: CALCIUM CARBONATE\CHOLECALCIFEROL
     Indication: OSTEOPOROSIS PROPHYLAXIS
     Dosage: 500 MG/400 IE; 1-0-0
     Route: 048
     Dates: start: 20130819
  11. PREDNISOLONE. [Concomitant]
     Active Substance: PREDNISOLONE
     Indication: CREST SYNDROME
     Dosage: 5 MG; 1-0-0
     Route: 048
     Dates: start: 20161107
  12. ALDACTONE [Concomitant]
     Active Substance: SPIRONOLACTONE
     Indication: HYPERTENSION
     Dosage: 25 MG; 1-0-0
     Route: 048
     Dates: start: 20160404
  13. NOVAMINSULFON [Concomitant]
     Active Substance: METAMIZOLE
     Indication: PAIN
     Dosage: 500MG/ML
     Route: 048
     Dates: start: 20110627

REACTIONS (7)
  - Rhabdomyolysis [Unknown]
  - Peripheral artery occlusion [Unknown]
  - Leg amputation [Unknown]
  - Acute myocardial infarction [Fatal]
  - Cardiogenic shock [Fatal]
  - Cerebral ischaemia [Unknown]
  - Acute kidney injury [Unknown]
